FAERS Safety Report 12397831 (Version 1)
Quarter: 2016Q2

REPORT INFORMATION
  Report Type: Spontaneous
  Country: US (occurrence: US)
  Receive Date: 20160524
  Receipt Date: 20160524
  Transmission Date: 20160815
  Serious: Yes (Hospitalization)
  Sender: FDA-Public Use
  Company Number: US-NOVOPROD-492627

PATIENT
  Age: 74 Year
  Sex: Female
  Weight: 85.26 kg

DRUGS (2)
  1. NOVOLOG [Suspect]
     Active Substance: INSULIN ASPART
     Indication: TYPE 2 DIABETES MELLITUS
     Dosage: 50 U, QD (12 UNITS THE AM, 15 UNITS AT LUNCH, AND 23 UNITS IN THE PM)
     Route: 058
  2. LEVEMIR [Suspect]
     Active Substance: INSULIN DETEMIR
     Indication: TYPE 2 DIABETES MELLITUS
     Dosage: 70 U, QD (35 UNITS IN THE AM AND AFTER 10PM)
     Route: 058
     Dates: start: 2016

REACTIONS (3)
  - Blindness unilateral [Recovering/Resolving]
  - Weight increased [Not Recovered/Not Resolved]
  - Fatigue [Not Recovered/Not Resolved]

NARRATIVE: CASE EVENT DATE: 2016
